FAERS Safety Report 7056343-9 (Version None)
Quarter: 2010Q4

REPORT INFORMATION
  Report Type: 
  Country: None (occurrence: None)
  Receive Date: 20101018
  Receipt Date: 20101008
  Transmission Date: 20110411
  Serious: Yes (Death, Life-Threatening, Hospitalization)
  Sender: FDA-Public Use
  Company Number: WAES 1009USA01919

PATIENT
  Age: 66 Year
  Sex: Male

DRUGS (9)
  1. VYTORIN [Suspect]
     Indication: ACUTE CORONARY SYNDROME
     Dosage: 10-40 MG/DAILY PO
     Route: 048
     Dates: start: 20100513
  2. PLACEBO [Suspect]
     Indication: ACUTE CORONARY SYNDROME
     Dosage: PO ; PO
     Route: 048
     Dates: start: 20100513
  3. PLACEBO [Suspect]
     Indication: ACUTE CORONARY SYNDROME
     Dosage: PO ; PO
     Route: 048
     Dates: start: 20100513
  4. AMLODIPINE [Concomitant]
  5. ASPIRIN [Concomitant]
  6. CLOPIDOGREL BISULFATE [Concomitant]
  7. ENALAPRIL MALEATE [Concomitant]
  8. METOPROLOL [Concomitant]
  9. OMEPRAZOLE [Concomitant]

REACTIONS (11)
  - ACUTE MYOCARDIAL INFARCTION [None]
  - ANGINA UNSTABLE [None]
  - ATRIOVENTRICULAR BLOCK COMPLETE [None]
  - CARDIOGENIC SHOCK [None]
  - HYPOCHROMIC ANAEMIA [None]
  - HYPOPERFUSION [None]
  - HYPOVOLAEMIC SHOCK [None]
  - MELAENA [None]
  - METABOLIC ACIDOSIS [None]
  - PULMONARY ALVEOLAR HAEMORRHAGE [None]
  - RENAL FAILURE ACUTE [None]
